FAERS Safety Report 5003013-4 (Version None)
Quarter: 2006Q2

REPORT INFORMATION
  Report Type: 
  Country: None (occurrence: None)
  Receive Date: 20060516
  Receipt Date: 20060504
  Transmission Date: 20061013
  Serious: Yes (Hospitalization)
  Sender: FDA-Public Use
  Company Number: US-MERCK-0605USA01066

PATIENT
  Age: 63 Year
  Sex: Female
  Weight: 61 kg

DRUGS (7)
  1. VIOXX [Suspect]
     Indication: ARTHRITIS
     Route: 048
     Dates: start: 20010101, end: 20010601
  2. ZOLOFT [Concomitant]
     Route: 065
  3. PREMARIN [Concomitant]
     Route: 065
  4. COUMADIN [Concomitant]
     Route: 065
  5. LEVAQUIN [Concomitant]
     Route: 065
  6. ZOCOR [Concomitant]
     Route: 065
  7. FLONASE [Concomitant]
     Route: 065

REACTIONS (1)
  - CEREBROVASCULAR ACCIDENT [None]
